FAERS Safety Report 19257277 (Version 1)
Quarter: 2021Q2

REPORT INFORMATION
  Report Type: Report from Study
  Country: US (occurrence: US)
  Receive Date: 20210513
  Receipt Date: 20210513
  Transmission Date: 20210717
  Serious: Yes (Other)
  Sender: FDA-Public Use
  Company Number: US-UCBSA-2021020998

PATIENT
  Age: 1 Year
  Sex: Male
  Weight: 3.49 kg

DRUGS (13)
  1. ESTROGEN [Concomitant]
     Active Substance: ESTROGENS
     Indication: IN VITRO FERTILISATION
     Dosage: 1 SHOT A DAY
     Route: 064
     Dates: start: 20170523, end: 20170728
  2. CERTOLIZUMAB PEGOL RA [Suspect]
     Active Substance: CERTOLIZUMAB PEGOL
     Indication: RHEUMATOID ARTHRITIS
     Dosage: 200 MILLIGRAM, 2X/MONTH
     Route: 064
     Dates: start: 20150615, end: 20180213
  3. BABY ASPIRIN [Concomitant]
     Active Substance: ASPIRIN
     Indication: IN VITRO FERTILISATION
     Dosage: 1 PILL DAILY
     Route: 064
     Dates: start: 20170523, end: 20170728
  4. DHA [Concomitant]
     Active Substance: DIETARY SUPPLEMENT
     Dosage: 1 SERVING A DAY
     Route: 064
     Dates: start: 20150801, end: 20180213
  5. TYLENOL [Concomitant]
     Active Substance: ACETAMINOPHEN
     Indication: RHEUMATOID ARTHRITIS
     Dosage: 650 MILLIGRAM, 2X/DAY (BID)
     Route: 064
  6. IRON [Concomitant]
     Active Substance: IRON
     Indication: PRODUCT USED FOR UNKNOWN INDICATION
     Dosage: 1 PILL DAILY
     Route: 064
     Dates: start: 20171101, end: 20180213
  7. PROGESTERONE. [Concomitant]
     Active Substance: PROGESTERONE
     Indication: IN VITRO FERTILISATION
     Dosage: 1 SHOT A DAY
     Route: 064
     Dates: start: 20170523, end: 20170728
  8. TDAP [Concomitant]
     Active Substance: TETANUS TOXOID, REDUCED DIPHTHERIA TOXOID AND ACELLULAR PERTUSSIS VACCINE ADSORBED, TDAP
     Indication: PRODUCT USED FOR UNKNOWN INDICATION
     Dosage: 1 SHOT A DAY
     Route: 064
     Dates: start: 20171123, end: 20171123
  9. TYLENOL [Concomitant]
     Active Substance: ACETAMINOPHEN
     Indication: GASTROENTERITIS VIRAL
     Dosage: 500 MILLIGRAM 2.5X DAY
     Route: 064
     Dates: start: 20180101, end: 20180102
  10. TYLENOL [Concomitant]
     Active Substance: ACETAMINOPHEN
     Dosage: 1300 MILLIGRAM X2
     Route: 064
     Dates: start: 20170428, end: 20170828
  11. FLU VACCINE VII [Concomitant]
     Active Substance: INFLUENZA VIRUS VACCINE
     Dosage: 1 SHOT A DAY
     Route: 064
     Dates: start: 20170801, end: 20170801
  12. PRENATAL VITAMINS [MINERALS NOS;VITAMINS NOS] [Concomitant]
     Active Substance: MINERALS\VITAMINS
     Indication: PRODUCT USED FOR UNKNOWN INDICATION
     Dosage: 1 PILL A DAY
     Route: 064
     Dates: start: 20150801, end: 20180213
  13. PLAQUENIL [Concomitant]
     Active Substance: HYDROXYCHLOROQUINE SULFATE
     Indication: RHEUMATOID ARTHRITIS
     Dosage: 250 MILLIGRAM, ONCE DAILY (QD)
     Route: 064
     Dates: start: 20170511, end: 20180213

REACTIONS (2)
  - Maternal exposure before pregnancy [Unknown]
  - Speech disorder developmental [Unknown]

NARRATIVE: CASE EVENT DATE: 20170525
